FAERS Safety Report 8159064-4 (Version None)
Quarter: 2012Q1

REPORT INFORMATION
  Report Type: 
  Country: None (occurrence: None)
  Receive Date: 20120217
  Receipt Date: 20120207
  Transmission Date: 20120608
  Serious: Yes (Other)
  Sender: FDA-Public Use
  Company Number: AUR-APL-2012-00919

PATIENT
  Sex: Female
  Weight: 65.76 kg

DRUGS (4)
  1. CARVEDILOL [Concomitant]
  2. LOSARTAN POTASSIUM [Suspect]
     Indication: PRODUCT USED FOR UNKNOWN INDICATION
     Dosage: 50 MG
  3. LIPITOR [Suspect]
     Indication: PRODUCT USED FOR UNKNOWN INDICATION
     Dosage: UNKNOWN
  4. ATORVASTATIN CALCIUM [Suspect]
     Indication: PRODUCT USED FOR UNKNOWN INDICATION
     Dosage: 20 MG, ORAL
     Route: 048
     Dates: start: 20120118

REACTIONS (5)
  - PARAESTHESIA [None]
  - OSTEOARTHRITIS [None]
  - CONDITION AGGRAVATED [None]
  - HYPOAESTHESIA [None]
  - MYALGIA [None]
